FAERS Safety Report 4934922-X (Version None)
Quarter: 2006Q1

REPORT INFORMATION
  Report Type: 
  Country: None (occurrence: None)
  Receive Date: 20060306
  Receipt Date: 20060306
  Transmission Date: 20060701
  Serious: Yes (Other)
  Sender: FDA-Public Use
  Company Number: None

PATIENT
  Age: 56 Year
  Sex: Male
  Weight: 99.7913 kg

DRUGS (2)
  1. CIPRO [Suspect]
     Indication: POSTOPERATIVE CARE
     Dates: start: 20060225, end: 20060303
  2. CIPRO [Suspect]
     Indication: TOE AMPUTATION
     Dates: start: 20060225, end: 20060303

REACTIONS (2)
  - AGITATION [None]
  - HALLUCINATION [None]
